FAERS Safety Report 15417388 (Version 1)
Quarter: 2018Q3

REPORT INFORMATION
  Report Type: Spontaneous
  Country: US (occurrence: US)
  Receive Date: 20180917
  Receipt Date: 20180917
  Transmission Date: 20181010
  Serious: Yes (Death)
  Sender: FDA-Public Use
  Company Number: None

PATIENT
  Age: 66 Year
  Sex: Male

DRUGS (1)
  1. TEMOZOLOMIDE 100MG CAP [Suspect]
     Active Substance: TEMOZOLOMIDE
     Indication: SPINAL MENINGIOMA MALIGNANT
     Dosage: ?          OTHER FREQUENCY:QHS FOR 5 DAYS;?
     Route: 048
     Dates: start: 20180710, end: 20180910

REACTIONS (1)
  - Death [None]

NARRATIVE: CASE EVENT DATE: 20180910
